FAERS Safety Report 16937937 (Version 1)
Quarter: 2019Q4

REPORT INFORMATION
  Report Type: Spontaneous
  Country: US (occurrence: US)
  Receive Date: 20191018
  Receipt Date: 20191018
  Transmission Date: 20200122
  Serious: Yes (Other)
  Sender: FDA-Public Use
  Company Number: US-BRISTOL-MYERS SQUIBB COMPANY-BMS-2019-097620

PATIENT

DRUGS (6)
  1. ERYTHROMYCIN [ERYTHROMYCIN STEARATE] [Interacting]
     Active Substance: ERYTHROMYCIN STEARATE
     Indication: PRODUCT USED FOR UNKNOWN INDICATION
     Dosage: 250 MILLIGRAM, BID
     Route: 065
  2. WARFARIN SODIUM. [Suspect]
     Active Substance: WARFARIN SODIUM
     Indication: DEEP VEIN THROMBOSIS
     Dosage: 10.0 TO 12.5 MG PER DAY
     Route: 065
  3. ERYTHROMYCIN [ERYTHROMYCIN STEARATE] [Interacting]
     Active Substance: ERYTHROMYCIN STEARATE
     Indication: ANTIBIOTIC PROPHYLAXIS
     Dosage: 250 MILLIGRAM, QID
     Route: 065
  4. WARFARIN SODIUM. [Interacting]
     Active Substance: WARFARIN SODIUM
     Indication: PRODUCT USED FOR UNKNOWN INDICATION
     Dosage: MAINTAINED ON A DOSE OF WARFARIN BETWEEN 10.0 AND 12.5 MG PER DAY FOR SIX MONTHS
     Route: 065
  5. ERYTHROMYCIN [ERYTHROMYCIN STEARATE] [Interacting]
     Active Substance: ERYTHROMYCIN STEARATE
     Indication: PRODUCT USED FOR UNKNOWN INDICATION
     Dosage: 250 MILLIGRAM, QD
     Route: 065
  6. WARFARIN SODIUM. [Interacting]
     Active Substance: WARFARIN SODIUM
     Indication: PRODUCT USED FOR UNKNOWN INDICATION
     Dosage: 10 MILLIGRAM, QD
     Route: 065

REACTIONS (5)
  - Retroperitoneal haematoma [Recovered/Resolved]
  - Labelled drug-drug interaction medication error [Unknown]
  - Haematuria [Recovered/Resolved]
  - Ecchymosis [Recovered/Resolved]
  - Prothrombin time prolonged [Recovered/Resolved]
